FAERS Safety Report 8533840 (Version 6)
Quarter: 2012Q4

REPORT INFORMATION
  Report Type: Report from Study
  Country: US (occurrence: US)
  Receive Date: 20120427
  Receipt Date: 20120925
  Transmission Date: 20130627
  Serious: Yes (Hospitalization)
  Sender: FDA-Public Use
  Company Number: US-SANOFI-AVENTIS-2012SA012346

PATIENT
  Age: 72 Year
  Sex: Male
  Weight: 98.2 kg

DRUGS (20)
  1. DOCETAXEL [Suspect]
     Indication: CARCINOMA OF THE PROSTATE METASTATIC
     Route: 042
     Dates: start: 20111214, end: 20111214
  2. DOCETAXEL [Suspect]
     Indication: CARCINOMA OF THE PROSTATE METASTATIC
     Route: 042
     Dates: start: 20120214, end: 20120214
  3. PREDNISONE [Suspect]
     Indication: CARCINOMA OF THE PROSTATE METASTATIC
     Route: 048
     Dates: start: 20111214, end: 20120304
  4. DEXAMETHASONE [Concomitant]
     Route: 065
  5. SIMVASTATIN [Concomitant]
     Route: 048
     Dates: start: 20111129
  6. SEROQUEL [Concomitant]
     Route: 048
     Dates: start: 2000
  7. METOPROLOL [Concomitant]
     Route: 048
     Dates: start: 201101
  8. WARFARIN [Concomitant]
     Route: 048
     Dates: start: 201104
  9. MULTIVITAMINS [Concomitant]
     Route: 048
     Dates: start: 2000
  10. TUMS [Concomitant]
     Route: 048
     Dates: start: 2009, end: 20120214
  11. EX-LAX ^EX-LAX INC^ [Concomitant]
     Route: 048
     Dates: start: 2000
  12. CRESTOR /UNK/ [Concomitant]
     Route: 048
     Dates: start: 20111130
  13. LEXAPRO [Concomitant]
     Route: 048
     Dates: start: 20120104
  14. GM-CSF [Concomitant]
     Route: 058
     Dates: start: 20120113
  15. LORTAB [Concomitant]
     Route: 048
     Dates: start: 20111215
  16. CIPROFLOXACIN [Concomitant]
     Route: 048
     Dates: start: 20120112, end: 20120117
  17. CIPROFLOXACIN [Concomitant]
     Route: 048
     Dates: start: 20120201, end: 20120206
  18. LASIX [Concomitant]
     Route: 048
     Dates: start: 20120214
  19. POTASSIUM [Concomitant]
     Route: 048
     Dates: start: 20120214
  20. ALL OTHER THERAPEUTIC PRODUCTS [Concomitant]
     Route: 048
     Dates: start: 20120214

REACTIONS (2)
  - Gastric ulcer [Recovered/Resolved]
  - Constipation [Recovered/Resolved]
